FAERS Safety Report 7208624-3 (Version None)
Quarter: 2010Q4

REPORT INFORMATION
  Report Type: 
  Country: None (occurrence: None)
  Receive Date: 20101222
  Receipt Date: 20101214
  Transmission Date: 20110411
  Serious: Yes (Disabling)
  Sender: FDA-Public Use
  Company Number: 2010MA005195

PATIENT
  Sex: Female

DRUGS (3)
  1. METOCLOPRAMIDE TABLETS LISP, 10 MG (PUREPAC) [Suspect]
     Indication: DYSPEPSIA
     Dosage: 10 MG; ;PO
     Route: 048
     Dates: start: 20020101
  2. METOCLOPRAMIDE TABLETS LISP, 10 MG (PUREPAC) [Suspect]
     Indication: GASTROOESOPHAGEAL REFLUX DISEASE
     Dosage: 10 MG; ;PO
     Route: 048
     Dates: start: 20020101
  3. METOCLOPRAMIDE TABLETS LISP, 10 MG (PUREPAC) [Suspect]
     Indication: ULCER
     Dosage: 10 MG; ;PO
     Route: 048
     Dates: start: 20020101

REACTIONS (12)
  - ACTIVITIES OF DAILY LIVING IMPAIRED [None]
  - ANXIETY [None]
  - DEFORMITY [None]
  - ECONOMIC PROBLEM [None]
  - EMOTIONAL DISTRESS [None]
  - EXTRAPYRAMIDAL DISORDER [None]
  - INCORRECT DRUG ADMINISTRATION DURATION [None]
  - INJURY [None]
  - MENTAL DISORDER [None]
  - NERVOUS SYSTEM DISORDER [None]
  - PAIN [None]
  - TARDIVE DYSKINESIA [None]
